FAERS Safety Report 9029117 (Version 1)
Quarter: 2013Q1

REPORT INFORMATION
  Report Type: Spontaneous
  Country: US (occurrence: US)
  Receive Date: 20130122
  Receipt Date: 20130122
  Transmission Date: 20140127
  Serious: Yes (Death, Other)
  Sender: FDA-Public Use
  Company Number: US-PFIZER INC-2013022111

PATIENT
  Age: 83 Year
  Sex: Female

DRUGS (1)
  1. REVATIO [Suspect]
     Dosage: UNK

REACTIONS (1)
  - Lung neoplasm malignant [Fatal]
